FAERS Safety Report 4576279-2 (Version None)
Quarter: 2005Q1

REPORT INFORMATION
  Report Type: 
  Country: None (occurrence: None)
  Receive Date: 20050207
  Receipt Date: 20050124
  Transmission Date: 20050727
  Serious: Yes (Other)
  Sender: FDA-Public Use
  Company Number: 2005019610

PATIENT
  Sex: Male

DRUGS (2)
  1. VIRACEPT [Suspect]
     Indication: HIV INFECTION
     Dosage: ORAL
     Route: 048
     Dates: end: 20040101
  2. LAMIVUDINE [Suspect]
     Indication: HIV INFECTION
     Dosage: ORAL
     Route: 048
     Dates: end: 20040101

REACTIONS (14)
  - AMNIOCENTESIS ABNORMAL [None]
  - AMNIOTIC FLUID VOLUME DECREASED [None]
  - C-REACTIVE PROTEIN INCREASED [None]
  - CAESAREAN SECTION [None]
  - CULTURE POSITIVE [None]
  - DRUG EXPOSURE DURING PREGNANCY [None]
  - FOETAL DISTRESS SYNDROME [None]
  - FOETAL HEART RATE DISORDER [None]
  - MALAISE [None]
  - NEONATAL APNOEIC ATTACK [None]
  - NEONATAL RESPIRATORY DISTRESS SYNDROME [None]
  - PREMATURE BABY [None]
  - PREMATURE LABOUR [None]
  - TOXOPLASMOSIS [None]
